FAERS Safety Report 13680722 (Version 1)
Quarter: 2017Q2

REPORT INFORMATION
  Report Type: Spontaneous
  Country: FR (occurrence: FR)
  Receive Date: 20170623
  Receipt Date: 20170623
  Transmission Date: 20170830
  Serious: Yes (Hospitalization)
  Sender: FDA-Public Use
  Company Number: FR-ROCHE-1953042

PATIENT
  Age: 76 Year
  Sex: Female

DRUGS (12)
  1. FUCIDINE [Concomitant]
     Active Substance: FUSIDIC ACID
     Indication: ANGULAR CHEILITIS
     Route: 003
  2. PARACETAMOL [Concomitant]
     Active Substance: ACETAMINOPHEN
     Indication: PAIN
     Route: 048
  3. DABRAFENIB [Concomitant]
     Active Substance: DABRAFENIB
     Route: 065
     Dates: start: 20170523
  4. COTELLIC [Suspect]
     Active Substance: COBIMETINIB
     Indication: METASTATIC MALIGNANT MELANOMA
     Dosage: 3 TABLETS/DAY, FOR 21 DAYS OUT OF 28
     Route: 048
     Dates: start: 20160819, end: 20170421
  5. ALOFERAL [Concomitant]
  6. ATORVASTATIN [Concomitant]
     Active Substance: ATORVASTATIN
     Indication: DYSLIPIDAEMIA
     Route: 048
  7. KARDEGIC [Concomitant]
     Active Substance: ASPIRIN LYSINE
     Indication: THROMBOSIS PROPHYLAXIS
     Route: 048
  8. CORTANCYL [Concomitant]
     Active Substance: PREDNISONE
     Indication: MALIGNANT MELANOMA
     Route: 048
  9. INEXIUM [Concomitant]
     Active Substance: ESOMEPRAZOLE
     Route: 048
  10. DERMALIBOUR [Concomitant]
     Indication: ANGULAR CHEILITIS
  11. TRAMETINIB [Concomitant]
     Active Substance: TRAMETINIB
  12. ZELBORAF [Suspect]
     Active Substance: VEMURAFENIB
     Indication: METASTATIC MALIGNANT MELANOMA
     Route: 048
     Dates: start: 20160819, end: 20170421

REACTIONS (2)
  - Cardiac failure [Recovered/Resolved]
  - Rhabdomyolysis [Recovered/Resolved]

NARRATIVE: CASE EVENT DATE: 20170421
